FAERS Safety Report 8041660-6 (Version None)
Quarter: 2012Q1

REPORT INFORMATION
  Report Type: 
  Country: None (occurrence: None)
  Receive Date: 20120112
  Receipt Date: 20120103
  Transmission Date: 20120608
  Serious: Yes (Life-Threatening, Hospitalization, Other)
  Sender: FDA-Public Use
  Company Number: FR-ELI_LILLY_AND_COMPANY-FR201201000210

PATIENT
  Sex: Male

DRUGS (4)
  1. LEPTICUR [Concomitant]
     Indication: TREMOR
     Dosage: 10 MG, QD
     Route: 048
  2. RISPERDAL [Concomitant]
     Indication: PSYCHOTIC DISORDER
     Dosage: 2 MG, QD
  3. ZYPREXA [Suspect]
     Indication: PSYCHOTIC DISORDER
     Dosage: 10 MG, QD
     Route: 048
  4. SULPIRIDE [Concomitant]
     Route: 048

REACTIONS (10)
  - COMA [None]
  - RENAL FAILURE ACUTE [None]
  - STAPHYLOCOCCAL BACTERAEMIA [None]
  - ANTIPSYCHOTIC DRUG LEVEL INCREASED [None]
  - RHABDOMYOLYSIS [None]
  - ACIDOSIS [None]
  - ENTEROCOCCAL INFECTION [None]
  - HAEMODYNAMIC INSTABILITY [None]
  - BLOOD POTASSIUM DECREASED [None]
  - MECHANICAL VENTILATION [None]
